FAERS Safety Report 24639829 (Version 2)
Quarter: 2025Q2

REPORT INFORMATION
  Report Type: Spontaneous
  Country: US (occurrence: US)
  Receive Date: 20241120
  Receipt Date: 20250607
  Transmission Date: 20250717
  Serious: No
  Sender: COHERUS
  Company Number: US-COHERUS BIOSCIENCES, INC-2024-COH-US000974

PATIENT

DRUGS (17)
  1. UDENYCA [Suspect]
     Active Substance: PEGFILGRASTIM-CBQV
     Indication: Prophylaxis
     Dosage: ^INJECT DOSE EVERY 14 DAYS AFTER CHEMO
     Route: 058
  2. UDENYCA [Suspect]
     Active Substance: PEGFILGRASTIM-CBQV
     Dosage: ^INJECT DOSE EVERY 14 DAYS AFTER CHEMO
     Route: 058
     Dates: start: 20240812
  3. UDENYCA [Suspect]
     Active Substance: PEGFILGRASTIM-CBQV
     Dosage: ^INJECT DOSE EVERY 14 DAYS AFTER CHEMO
     Route: 058
     Dates: start: 20240826
  4. UDENYCA [Suspect]
     Active Substance: PEGFILGRASTIM-CBQV
     Dosage: ^INJECT DOSE EVERY 14 DAYS AFTER CHEMO
     Route: 058
     Dates: start: 20240909
  5. DOXORUBICIN [Concomitant]
     Active Substance: DOXORUBICIN
  6. CYTOXAN [Concomitant]
     Active Substance: CYCLOPHOSPHAMIDE
  7. Vitamin B17 [Concomitant]
  8. VITAMIN B12 [Concomitant]
     Active Substance: CYANOCOBALAMIN
  9. VARUBI [Concomitant]
     Active Substance: ROLAPITANT
  10. OXYCODONE [Concomitant]
     Active Substance: OXYCODONE
  11. NYSTATIN [Concomitant]
     Active Substance: NYSTATIN
  12. FLUCONAZOLE [Concomitant]
     Active Substance: FLUCONAZOLE
  13. LIDOCAINE [Concomitant]
     Active Substance: LIDOCAINE
  14. COMPAZINE [Concomitant]
     Active Substance: PROCHLORPERAZINE MALEATE
  15. BACLOFEN [Concomitant]
     Active Substance: BACLOFEN
  16. IRON [Concomitant]
     Active Substance: IRON
  17. ONDANSETRON [Concomitant]
     Active Substance: ONDANSETRON

REACTIONS (1)
  - Product dose omission issue [Not Recovered/Not Resolved]

NARRATIVE: CASE EVENT DATE: 20240923
